FAERS Safety Report 18312763 (Version 1)
Quarter: 2020Q3

REPORT INFORMATION
  Report Type: Spontaneous
  Country: GB (occurrence: GB)
  Receive Date: 20200925
  Receipt Date: 20200925
  Transmission Date: 20201103
  Serious: Yes (Other)
  Sender: FDA-Public Use
  Company Number: GB-TEVA-2020-GB-1830017

PATIENT
  Age: 71 Year
  Sex: Female
  Weight: 53 kg

DRUGS (4)
  1. LIXIANA [Concomitant]
     Active Substance: EDOXABAN TOSYLATE
  2. BISOPROLOL FUMARATE. [Concomitant]
     Active Substance: BISOPROLOL FUMARATE
  3. PROGYNOVA [Concomitant]
     Active Substance: ESTRADIOL VALERATE
  4. FOLIC ACID. [Suspect]
     Active Substance: FOLIC ACID
     Dosage: 5 MILLIGRAM DAILY; AT 12 MIDDAY
     Route: 048
     Dates: start: 20200821, end: 20200823

REACTIONS (3)
  - Vomiting [Unknown]
  - Dizziness [Recovered/Resolved]
  - Abdominal distension [Recovered/Resolved]

NARRATIVE: CASE EVENT DATE: 20200821
